FAERS Safety Report 10714055 (Version 2)
Quarter: 2015Q1

REPORT INFORMATION
  Report Type: Report from Study
  Country: ZA (occurrence: ZA)
  Receive Date: 20150115
  Receipt Date: 20150120
  Transmission Date: 20150721
  Serious: Yes (Death, Other)
  Sender: FDA-Public Use
  Company Number: ZA-ASTELLAS-2014EU014291

PATIENT
  Age: 67 Year
  Sex: Male

DRUGS (1)
  1. ENZALUTAMIDE [Suspect]
     Active Substance: ENZALUTAMIDE
     Indication: HORMONE-REFRACTORY PROSTATE CANCER
     Dosage: 4 CAPS, ONCE DAILY
     Route: 048
     Dates: start: 201408, end: 20141111

REACTIONS (4)
  - Malignant neoplasm progression [Unknown]
  - Death [Fatal]
  - Drug ineffective [Unknown]
  - Metastases to meninges [Unknown]

NARRATIVE: CASE EVENT DATE: 20141111
